FAERS Safety Report 23644536 (Version 1)
Quarter: 2024Q1

REPORT INFORMATION
  Report Type: Spontaneous
  Country: US (occurrence: US)
  Receive Date: 20240318
  Receipt Date: 20240318
  Transmission Date: 20240410
  Serious: Yes (Hospitalization, Other)
  Sender: FDA-Public Use
  Company Number: US-SA-SAC20240312001406

PATIENT
  Age: 74 Year
  Sex: Male

DRUGS (1)
  1. REZUROCK [Suspect]
     Active Substance: BELUMOSUDIL
     Indication: Acute graft versus host disease
     Dosage: 200 MG, BID
     Route: 048
     Dates: start: 20230228

REACTIONS (9)
  - Pneumonitis [Unknown]
  - Oesophageal stenosis [Unknown]
  - Aspiration [Unknown]
  - Graft versus host disease in skin [Unknown]
  - Condition aggravated [Unknown]
  - Weight decreased [Unknown]
  - Tongue disorder [Unknown]
  - Fatigue [Unknown]
  - Inappropriate schedule of product administration [Unknown]

NARRATIVE: CASE EVENT DATE: 20230228
